FAERS Safety Report 5349950-2 (Version None)
Quarter: 2007Q2

REPORT INFORMATION
  Report Type: 
  Country: None (occurrence: None)
  Receive Date: 20070607
  Receipt Date: 20070529
  Transmission Date: 20071010
  Serious: Yes (Death, Life-Threatening, Hospitalization, Other)
  Sender: FDA-Public Use
  Company Number: US-SHR-US-2006-038363

PATIENT
  Age: 51 Year
  Sex: Female
  Weight: 97 kg

DRUGS (3)
  1. MAGNEVIST [Suspect]
     Indication: NUCLEAR MAGNETIC RESONANCE IMAGING
     Dosage: 20 ML, 1 DOSE
     Route: 042
     Dates: start: 20061207, end: 20061207
  2. DECADRON                                /NET/ [Concomitant]
     Dosage: 10 MG, 1 DOSE
     Route: 042
     Dates: start: 20061207, end: 20061207
  3. DECADRON                                /NET/ [Concomitant]
     Dosage: 20 MG, 1 DOSE
     Route: 042
     Dates: start: 20061207, end: 20061207

REACTIONS (13)
  - ANAPHYLACTIC REACTION [None]
  - BLOOD PRESSURE INCREASED [None]
  - CONVULSION [None]
  - COUGH [None]
  - DYSPNOEA [None]
  - ELECTROMECHANICAL DISSOCIATION [None]
  - FALL [None]
  - HEAD INJURY [None]
  - HYPERHIDROSIS [None]
  - LOSS OF CONSCIOUSNESS [None]
  - RESPIRATORY ARREST [None]
  - SWELLING FACE [None]
  - URINARY INCONTINENCE [None]
